FAERS Safety Report 21198590 (Version 1)
Quarter: 2022Q3

REPORT INFORMATION
  Report Type: Spontaneous
  Country: IT (occurrence: IT)
  Receive Date: 20220811
  Receipt Date: 20220811
  Transmission Date: 20221027
  Serious: Yes (Other)
  Sender: FDA-Public Use
  Company Number: IT-BIOVITRUM-2022IT09312

PATIENT
  Age: 1 Year
  Sex: Male

DRUGS (1)
  1. ANAKINRA [Suspect]
     Active Substance: ANAKINRA
     Indication: Inflammatory bowel disease
     Dosage: STARTING WITH A MEAN DAILY DOSE OF I -2 MG/KG, AND THEN WE PROGRESSIVELY INCREASED IT TO 5.5 MG/KG.

REACTIONS (3)
  - Kawasaki^s disease [Unknown]
  - Disease progression [Unknown]
  - Off label use [Recovered/Resolved]
